FAERS Safety Report 8127653-9 (Version None)
Quarter: 2011Q4

REPORT INFORMATION
  Report Type: 
  Country: None (occurrence: None)
  Receive Date: 20111228
  Receipt Date: 20110315
  Transmission Date: 20120403
  Serious: Yes (Hospitalization)
  Sender: FDA-Public Use
  Company Number: AUR-APL-2011-01083

PATIENT
  Age: 59 Year
  Sex: Female
  Weight: 69 kg

DRUGS (8)
  1. FAMOTIDINE [Concomitant]
  2. HYDROCHLOROTHIAZIDE [Suspect]
     Indication: HYPERTENSION
     Dosage: ORAL
     Route: 048
     Dates: start: 20090101, end: 20090101
  3. SERTRALINE HYDROCHLORIDE [Concomitant]
  4. ATENOLOL [Suspect]
     Indication: HYPERTENSION
     Dosage: ORAL
     Route: 048
     Dates: start: 20090101, end: 20090101
  5. RIVASTIGMINE TARTRATE [Concomitant]
  6. ASPIRIN [Concomitant]
  7. CHLORDIAZEPOXIDE HYDROCHLORIDE [Concomitant]
  8. LORAZEPAM [Concomitant]

REACTIONS (2)
  - HYPOTENSION [None]
  - ACCIDENTAL OVERDOSE [None]
